FAERS Safety Report 16615343 (Version 2)
Quarter: 2019Q3

REPORT INFORMATION
  Report Type: Spontaneous
  Country: DE (occurrence: DE)
  Receive Date: 20190723
  Receipt Date: 20190821
  Transmission Date: 20191004
  Serious: Yes (Hospitalization, Other)
  Sender: FDA-Public Use
  Company Number: DE-AUROBINDO-AUR-APL-2019-042734

PATIENT

DRUGS (4)
  1. PANTOPRAZOLE [Concomitant]
     Active Substance: PANTOPRAZOLE
     Indication: PRODUCT USED FOR UNKNOWN INDICATION
     Dosage: 40 MILLIGRAM, ONCE A DAY, 1-0-0-0
     Route: 048
  2. FERRO SANOL [Concomitant]
     Active Substance: FERROUS GLYCINE SULFATE
     Indication: PRODUCT USED FOR UNKNOWN INDICATION
     Dosage: 100 MILLIGRAM, ONCE A DAY (1-0-0-0)
     Route: 048
  3. IBUPROFEN 600 MG FILM-COATED TABLET [Suspect]
     Active Substance: IBUPROFEN
     Indication: PRODUCT USED FOR UNKNOWN INDICATION
     Dosage: 600 MILLIGRAM, IF NECESSARY 1X / DAY, TABLETS
     Route: 048
  4. NEURALGIN SCHMERZTABLETTEN [Suspect]
     Active Substance: ACETAMINOPHEN\ASPIRIN\CAFFEINE
     Indication: PRODUCT USED FOR UNKNOWN INDICATION
     Dosage: 250|200|50 MG,IF NECESSARY, MAX. 10 / DAY, TABLETS
     Route: 048

REACTIONS (4)
  - Abdominal pain upper [Unknown]
  - Product administration error [Unknown]
  - Haematochezia [Unknown]
  - Anaemia [Unknown]
